FAERS Safety Report 5158048-8 (Version None)
Quarter: 2006Q4

REPORT INFORMATION
  Report Type: 
  Country: None (occurrence: None)
  Receive Date: 20061116
  Receipt Date: 20060828
  Transmission Date: 20070319
  Serious: Yes (Death, Hospitalization, Other)
  Sender: FDA-Public Use
  Company Number: 2006085159

PATIENT
  Age: 65 Year
  Sex: Female
  Weight: 62.8 kg

DRUGS (5)
  1. SUTENT [Suspect]
     Indication: RENAL CELL CARCINOMA STAGE UNSPECIFIED
     Dosage: 50 MG (50 MG, FREQUENCY: DAILY INERVAL: 4WEEKS ON 2), ORAL
     Route: 048
     Dates: start: 20060609
  2. ACENOCOUMAROL (ACENOCOUMAROL) [Concomitant]
  3. SPIRONOLACTONE [Concomitant]
  4. AMOXICILLIN [Concomitant]
  5. IBUPROFEN [Concomitant]

REACTIONS (15)
  - ANOREXIA [None]
  - ASTHENIA [None]
  - CARDIAC FAILURE [None]
  - DYSPNOEA [None]
  - EMBOLISM [None]
  - HAEMOPTYSIS [None]
  - HEPATITIS ACUTE [None]
  - HYPOTENSION [None]
  - JUGULAR VEIN DISTENSION [None]
  - OEDEMA PERIPHERAL [None]
  - ORTHOPNOEA [None]
  - PETECHIAE [None]
  - RESPIRATORY TRACT HAEMORRHAGE [None]
  - THERAPY NON-RESPONDER [None]
  - THROMBOCYTOPENIA [None]
